FAERS Safety Report 16057762 (Version 3)
Quarter: 2019Q3

REPORT INFORMATION
  Report Type: Spontaneous
  Country: US (occurrence: US)
  Receive Date: 20190311
  Receipt Date: 20190718
  Transmission Date: 20191004
  Serious: Yes (Other)
  Sender: FDA-Public Use
  Company Number: US-PFIZER INC-2019096376

PATIENT
  Age: 31 Year
  Sex: Female
  Weight: 110 kg

DRUGS (1)
  1. DEPO-PROVERA [Suspect]
     Active Substance: MEDROXYPROGESTERONE ACETATE
     Indication: CONTRACEPTION
     Dosage: 1 INJECTION EVERY 3 MONTHS
     Route: 030
     Dates: end: 20181001

REACTIONS (4)
  - Skin mass [Recovering/Resolving]
  - Mycobacterium abscessus infection [Recovering/Resolving]
  - Skin infection [Recovering/Resolving]
  - Skin lesion [Recovering/Resolving]

NARRATIVE: CASE EVENT DATE: 20181015
